FAERS Safety Report 4393144-4 (Version None)
Quarter: 2004Q3

REPORT INFORMATION
  Report Type: 
  Country: None (occurrence: None)
  Receive Date: 20040708
  Receipt Date: 20040506
  Transmission Date: 20050211
  Serious: Yes (Other)
  Sender: FDA-Public Use
  Company Number: PHEH2004US05048

PATIENT
  Age: 77 Year
  Sex: Female
  Weight: 70 kg

DRUGS (7)
  1. DIOVAN [Suspect]
     Dosage: 40 MG, QD
     Route: 048
     Dates: start: 20040401, end: 20040505
  2. AMBIEN [Concomitant]
     Indication: TINNITUS
  3. PREMARIN [Concomitant]
  4. NEURONTIN [Concomitant]
  5. MULTI-VITAMINS [Concomitant]
  6. HERBAL ONT [Concomitant]
  7. BEXTRA [Concomitant]

REACTIONS (2)
  - PARAESTHESIA ORAL [None]
  - TIC [None]
